FAERS Safety Report 11658802 (Version 3)
Quarter: 2016Q3

REPORT INFORMATION
  Report Type: Spontaneous
  Country: CA (occurrence: CA)
  Receive Date: 20151026
  Receipt Date: 20160815
  Transmission Date: 20161109
  Serious: Yes (Other)
  Sender: FDA-Public Use
  Company Number: CA-ROCHE-1576817

PATIENT
  Age: 66 Year
  Sex: Male

DRUGS (7)
  1. LEFLUNOMIDE. [Concomitant]
     Active Substance: LEFLUNOMIDE
     Route: 065
  2. ARTHROTEC [Concomitant]
     Active Substance: DICLOFENAC SODIUM\MISOPROSTOL
     Indication: ARTHRALGIA
     Route: 048
  3. NAPROSYN [Suspect]
     Active Substance: NAPROXEN
     Indication: PRODUCT USED FOR UNKNOWN INDICATION
     Route: 065
  4. ENBREL [Suspect]
     Active Substance: ETANERCEPT
     Indication: RHEUMATOID ARTHRITIS
     Route: 065
     Dates: start: 2013
  5. CELEBREX [Suspect]
     Active Substance: CELECOXIB
     Indication: ARTHRITIS
     Route: 065
  6. XELJANZ [Suspect]
     Active Substance: TOFACITINIB CITRATE
     Indication: RHEUMATOID ARTHRITIS
     Route: 048
     Dates: start: 20140723
  7. METHOTREXATE. [Suspect]
     Active Substance: METHOTREXATE
     Indication: RHEUMATOID ARTHRITIS
     Route: 065

REACTIONS (39)
  - Anxiety [Not Recovered/Not Resolved]
  - Malaise [Not Recovered/Not Resolved]
  - Pain [Not Recovered/Not Resolved]
  - Arthropathy [Recovering/Resolving]
  - Nervousness [Not Recovered/Not Resolved]
  - Dry mouth [Not Recovered/Not Resolved]
  - Contraindicated product administered [Unknown]
  - Abdominal pain upper [Not Recovered/Not Resolved]
  - Myocardial infarction [Not Recovered/Not Resolved]
  - Neuropathy peripheral [Not Recovered/Not Resolved]
  - Decreased activity [Not Recovered/Not Resolved]
  - Bone pain [Recovering/Resolving]
  - Hernia [Not Recovered/Not Resolved]
  - Tenderness [Not Recovered/Not Resolved]
  - Joint swelling [Recovering/Resolving]
  - Fatigue [Not Recovered/Not Resolved]
  - Activities of daily living impaired [Not Recovered/Not Resolved]
  - Arthralgia [Not Recovered/Not Resolved]
  - Lip swelling [Not Recovered/Not Resolved]
  - Drug ineffective [Unknown]
  - Rash [Unknown]
  - Musculoskeletal pain [Recovering/Resolving]
  - Erythema [Not Recovered/Not Resolved]
  - Local swelling [Not Recovered/Not Resolved]
  - Abdominal pain upper [Unknown]
  - Aphthous ulcer [Unknown]
  - Swelling [Not Recovered/Not Resolved]
  - Pain in extremity [Recovering/Resolving]
  - Muscular weakness [Recovering/Resolving]
  - Rheumatoid arthritis [Unknown]
  - Depression [Not Recovered/Not Resolved]
  - Neck pain [Not Recovered/Not Resolved]
  - Sleep disorder [Unknown]
  - Peripheral swelling [Recovering/Resolving]
  - Asthenia [Not Recovered/Not Resolved]
  - Back pain [Not Recovered/Not Resolved]
  - Joint swelling [Not Recovered/Not Resolved]
  - Injection site erythema [Unknown]
  - Nausea [Recovered/Resolved]

NARRATIVE: CASE EVENT DATE: 20140817
